FAERS Safety Report 25651280 (Version 4)
Quarter: 2025Q4

REPORT INFORMATION
  Report Type: Spontaneous
  Country: EU (occurrence: EU)
  Receive Date: 20250806
  Receipt Date: 20251013
  Transmission Date: 20260119
  Serious: Yes (Other)
  Sender: BridgeBio Pharma
  Company Number: EU-BAYER-2025A101585

PATIENT

DRUGS (25)
  1. ACORAMIDIS [Suspect]
     Active Substance: ACORAMIDIS
     Indication: Cardiac amyloidosis
     Dosage: UNK
     Route: 065
     Dates: start: 202505, end: 20250915
  2. EDOXABAN [Concomitant]
     Active Substance: EDOXABAN
  3. EDOXABAN [Concomitant]
     Active Substance: EDOXABAN
  4. EDOXABAN [Concomitant]
     Active Substance: EDOXABAN
  5. BISOPROLOL [Concomitant]
     Active Substance: BISOPROLOL
  6. BISOPROLOL [Concomitant]
     Active Substance: BISOPROLOL
  7. BISOPROLOL [Concomitant]
     Active Substance: BISOPROLOL
  8. CANDESARTAN [Concomitant]
     Active Substance: CANDESARTAN
  9. CANDESARTAN [Concomitant]
     Active Substance: CANDESARTAN
  10. CANDESARTAN [Concomitant]
     Active Substance: CANDESARTAN
  11. DAPAGLIFLOZIN [Concomitant]
     Active Substance: DAPAGLIFLOZIN
  12. DAPAGLIFLOZIN [Concomitant]
     Active Substance: DAPAGLIFLOZIN
  13. DAPAGLIFLOZIN [Concomitant]
     Active Substance: DAPAGLIFLOZIN
  14. LEVOTHYROXINE [Concomitant]
     Active Substance: LEVOTHYROXINE
  15. LEVOTHYROXINE [Concomitant]
     Active Substance: LEVOTHYROXINE
  16. LEVOTHYROXINE [Concomitant]
     Active Substance: LEVOTHYROXINE
  17. MAGNESIUM [Concomitant]
     Active Substance: MAGNESIUM
  18. MAGNESIUM [Concomitant]
     Active Substance: MAGNESIUM
  19. MAGNESIUM [Concomitant]
     Active Substance: MAGNESIUM
  20. TORSEMIDE [Concomitant]
     Active Substance: TORSEMIDE
  21. TORSEMIDE [Concomitant]
     Active Substance: TORSEMIDE
  22. TORSEMIDE [Concomitant]
     Active Substance: TORSEMIDE
  23. ROSUVASTATIN [Concomitant]
     Active Substance: ROSUVASTATIN
  24. ROSUVASTATIN [Concomitant]
     Active Substance: ROSUVASTATIN
  25. ROSUVASTATIN [Concomitant]
     Active Substance: ROSUVASTATIN

REACTIONS (1)
  - Acute kidney injury [Recovering/Resolving]

NARRATIVE: CASE EVENT DATE: 20250729
